FAERS Safety Report 9299510 (Version 2)
Quarter: 2013Q2

REPORT INFORMATION
  Report Type: Spontaneous
  Country: US (occurrence: US)
  Receive Date: 20130521
  Receipt Date: 20130620
  Transmission Date: 20140414
  Serious: No
  Sender: FDA-Public Use
  Company Number: US-009507513-1305USA005269

PATIENT
  Age: 58 Year
  Sex: Female

DRUGS (2)
  1. PROVENTIL [Suspect]
     Indication: RESPIRATORY TRACT INFECTION
     Dosage: 2 PUFFS EVERY 4-6 HOURS AS NEEDED
     Route: 055
     Dates: start: 20130429
  2. ADVAIR [Concomitant]

REACTIONS (2)
  - Asthma [Recovered/Resolved]
  - Product quality issue [Unknown]
